FAERS Safety Report 6274178-1 (Version None)
Quarter: 2009Q3

REPORT INFORMATION
  Report Type: 
  Country: None (occurrence: None)
  Receive Date: 20090716
  Receipt Date: 20090701
  Transmission Date: 20100115
  Serious: Yes (Other)
  Sender: FDA-Public Use
  Company Number: 8044420

PATIENT
  Age: 22 Year
  Sex: Female

DRUGS (5)
  1. CERTOLIZUMAB PEGOL [Suspect]
     Indication: CROHN'S DISEASE
     Dosage: 400 MG SC
     Route: 058
     Dates: start: 20070216, end: 20071128
  2. CERTOLIZUMAB PEGOL [Suspect]
     Indication: CROHN'S DISEASE
     Dosage: 400 MG ONCE SC
     Route: 058
     Dates: start: 20080515
  3. CERTOLIZUMAB PEGOL [Suspect]
     Indication: CROHN'S DISEASE
     Dosage: ONCE SC
     Route: 058
  4. PARACETAMOL [Concomitant]
  5. PHLOROGLUCINOL [Concomitant]

REACTIONS (5)
  - ANGIOEDEMA [None]
  - DRUG EXPOSURE DURING PREGNANCY [None]
  - PSORIASIS [None]
  - RETAINED PLACENTA OR MEMBRANES [None]
  - VAGINAL HAEMORRHAGE [None]
